FAERS Safety Report 5744681-9 (Version None)
Quarter: 2008Q2

REPORT INFORMATION
  Report Type: 
  Country: None (occurrence: None)
  Receive Date: 20080516
  Receipt Date: 20080506
  Transmission Date: 20081010
  Serious: Yes (Hospitalization)
  Sender: FDA-Public Use
  Company Number: 2008US001294

PATIENT
  Sex: Male

DRUGS (8)
  1. PROGRAF [Suspect]
     Indication: RENAL TRANSPLANT
     Dates: start: 20071001
  2. PROCRIT [Suspect]
     Indication: ANAEMIA
  3. ARANESP [Suspect]
     Indication: NEPHROGENIC ANAEMIA
  4. MYFORTIC [Suspect]
     Indication: RENAL TRANSPLANT
  5. BACTRIM [Suspect]
     Indication: DRUG USE FOR UNKNOWN INDICATION
  6. PREDNISONE TAB [Concomitant]
  7. VALGANCICLOVIR HCL [Concomitant]
  8. TAMSULOSIN HCL [Concomitant]

REACTIONS (2)
  - APLASIA PURE RED CELL [None]
  - HAEMOGLOBIN DECREASED [None]
